FAERS Safety Report 5207746-6 (Version None)
Quarter: 2006Q4

REPORT INFORMATION
  Report Type: 
  Country: None (occurrence: None)
  Receive Date: 20061030
  Receipt Date: 20060918
  Transmission Date: 20070319
  Serious: Yes (Death)
  Sender: FDA-Public Use
  Company Number: 2006CT000752

PATIENT
  Age: 74 Year
  Sex: Female
  Weight: 59.8748 kg

DRUGS (7)
  1. VENTAVIS [Suspect]
     Indication: PULMONARY HYPERTENSION
     Dosage: 5 UG; 6XD; INH
     Route: 055
     Dates: start: 20060215, end: 20060918
  2. LASIX [Concomitant]
  3. POTASSIUM CHLORIDE [Concomitant]
  4. DIGOXIN [Concomitant]
  5. MORPHINE [Concomitant]
  6. ADVAIR DISKUS 100/50 [Concomitant]
  7. FOSAMAX [Concomitant]

REACTIONS (1)
  - COR PULMONALE CHRONIC [None]
